FAERS Safety Report 10755540 (Version 1)
Quarter: 2015Q1

REPORT INFORMATION
  Report Type: Spontaneous
  Country: US (occurrence: None)
  Receive Date: 20150123
  Receipt Date: 20150123
  Transmission Date: 20150721
  Serious: Yes (Hospitalization, Other)
  Sender: FDA-Public Use
  Company Number: 2014TUS008343

PATIENT
  Age: 40 Year
  Sex: Female
  Weight: 114.1 kg

DRUGS (5)
  1. NAPROXEN. [Concomitant]
     Active Substance: NAPROXEN
  2. ENTYVIO [Suspect]
     Active Substance: VEDOLIZUMAB
     Indication: CROHN^S DISEASE
     Dosage: 300 MG, (DID NOT RECEIVE}10%)
     Dates: start: 20140903
  3. DEXILANT [Concomitant]
     Active Substance: DEXLANSOPRAZOLE
  4. PREDNISONE. [Concomitant]
     Active Substance: PREDNISONE
  5. PHENERGAN/00033001/ (PROMETHAZINE) [Concomitant]

REACTIONS (1)
  - Syncope [None]

NARRATIVE: CASE EVENT DATE: 20140903
